FAERS Safety Report 4551618-7 (Version None)
Quarter: 2005Q1

REPORT INFORMATION
  Report Type: 
  Country: None (occurrence: None)
  Receive Date: 20050107
  Receipt Date: 20041230
  Transmission Date: 20050727
  Serious: Yes (Hospitalization)
  Sender: FDA-Public Use
  Company Number: K200401977

PATIENT
  Age: 84 Year
  Sex: Male

DRUGS (6)
  1. ALTACE [Suspect]
     Dosage: 5 MG QD ORAL
     Route: 048
     Dates: end: 20040814
  2. KARDEGIC (ACETYLSALICYLATE LYSINE) [Concomitant]
  3. HYPERIUM (RILMENIDINE) [Concomitant]
  4. INDOCOLLYRE (INDOMETACIN) [Concomitant]
  5. WYTENS (HYDROCHLOROTHIAZIDE, BISOPROLOL FUMARATE) [Concomitant]
  6. LIPANOR (CIPROFIBRATE) [Concomitant]

REACTIONS (4)
  - DEHYDRATION [None]
  - HYPERCALCAEMIA [None]
  - HYPERKALAEMIA [None]
  - RENAL FAILURE ACUTE [None]
